FAERS Safety Report 12279643 (Version 1)
Quarter: 2016Q2

REPORT INFORMATION
  Report Type: Spontaneous
  Country: US (occurrence: US)
  Receive Date: 20160418
  Receipt Date: 20160418
  Transmission Date: 20160815
  Serious: No
  Sender: FDA-Public Use
  Company Number: US-OTSUKA-2016_002901

PATIENT
  Age: 74 Year
  Sex: Female

DRUGS (5)
  1. REXULTI [Suspect]
     Active Substance: BREXPIPRAZOLE
     Dosage: UNK
     Route: 065
     Dates: start: 20160106
  2. REXULTI [Suspect]
     Active Substance: BREXPIPRAZOLE
     Indication: BIPOLAR I DISORDER
     Dosage: 1 MG, QD
     Route: 065
  3. LIDOCAINE. [Suspect]
     Active Substance: LIDOCAINE
     Indication: PRODUCT USED FOR UNKNOWN INDICATION
     Dosage: UNK
     Route: 065
     Dates: start: 20160127, end: 20160127
  4. REXULTI [Suspect]
     Active Substance: BREXPIPRAZOLE
     Indication: SCHIZOAFFECTIVE DISORDER
     Dosage: 0.5 MG, QD (FOR A MONTH)
     Route: 065
     Dates: start: 2015
  5. REXULTI [Suspect]
     Active Substance: BREXPIPRAZOLE
     Indication: SCHIZOPHRENIA
     Dosage: 1 MG, QD
     Route: 065
     Dates: start: 20160110

REACTIONS (18)
  - Back pain [Recovered/Resolved]
  - Feeling cold [Recovered/Resolved]
  - Asthenia [Recovered/Resolved]
  - Insomnia [Recovered/Resolved]
  - Inability to afford medication [Unknown]
  - Off label use [Unknown]
  - Terminal insomnia [Not Recovered/Not Resolved]
  - Diarrhoea [Recovered/Resolved]
  - Palpitations [Not Recovered/Not Resolved]
  - Gait disturbance [Recovered/Resolved]
  - Discomfort [Recovered/Resolved]
  - Fatigue [Recovered/Resolved]
  - Tremor [Recovered/Resolved]
  - Pain [Recovered/Resolved]
  - Frequent bowel movements [Recovered/Resolved]
  - Drug interaction [Unknown]
  - Hypertension [Recovered/Resolved]
  - Malaise [Recovered/Resolved]

NARRATIVE: CASE EVENT DATE: 2015
